FAERS Safety Report 4714858-X (Version None)
Quarter: 2005Q3

REPORT INFORMATION
  Report Type: 
  Country: None (occurrence: None)
  Receive Date: 20050715
  Receipt Date: 20050526
  Transmission Date: 20060218
  Serious: Yes (Life-Threatening)
  Sender: FDA-Public Use
  Company Number: 2005AP03094

PATIENT
  Age: 29484 Day
  Sex: Male
  Weight: 42 kg

DRUGS (17)
  1. DIPRIVAN [Suspect]
     Indication: GENERAL ANAESTHESIA
     Route: 042
     Dates: start: 20041206, end: 20041206
  2. DIPRIVAN [Suspect]
     Route: 042
     Dates: start: 20041206, end: 20041206
  3. DIPRIVAN [Suspect]
     Route: 042
     Dates: start: 20041206, end: 20041206
  4. MUSCULAX [Suspect]
     Indication: ANAESTHESIA
     Route: 042
     Dates: start: 20041206, end: 20041206
  5. MUSCULAX [Suspect]
     Indication: HYPOTONIA
     Route: 042
     Dates: start: 20041206, end: 20041206
  6. MUSCULAX [Suspect]
     Route: 041
     Dates: start: 20041208, end: 20041210
  7. MUSCULAX [Suspect]
     Route: 041
     Dates: start: 20041208, end: 20041210
  8. DORMICUM [Concomitant]
     Indication: ANAESTHESIA
     Route: 042
     Dates: start: 20041206, end: 20041206
  9. EPHEDRIN [Concomitant]
     Indication: VASOCONSTRICTION
     Route: 042
     Dates: start: 20041206, end: 20041206
  10. ONOACT [Concomitant]
     Route: 042
     Dates: start: 20041206, end: 20041206
  11. ANAPEINE INJECTION [Concomitant]
     Indication: EPIDURAL ANAESTHESIA
     Route: 008
     Dates: start: 20041206, end: 20041206
  12. ANAPEINE INJECTION [Concomitant]
     Indication: ANALGESIC THERAPY
     Route: 008
     Dates: start: 20041206, end: 20041206
  13. ANAPEINE INJECTION [Concomitant]
     Route: 008
     Dates: start: 20041206, end: 20041206
  14. ANAPEINE INJECTION [Concomitant]
     Route: 008
     Dates: start: 20041206, end: 20041206
  15. ATROPINE SULFATE [Concomitant]
     Route: 042
     Dates: start: 20041206, end: 20041206
  16. FENTANEST [Concomitant]
     Dates: start: 20041206, end: 20041206
  17. INOVAN [Concomitant]
     Indication: VASOCONSTRICTION
     Route: 042
     Dates: start: 20041206, end: 20041206

REACTIONS (8)
  - BLOOD PRESSURE DECREASED [None]
  - DISSEMINATED INTRAVASCULAR COAGULATION [None]
  - HAEMODIALYSIS [None]
  - HYPOTHERMIA [None]
  - HYPOXIA [None]
  - OPERATIVE HAEMORRHAGE [None]
  - PNEUMONIA [None]
  - RHABDOMYOLYSIS [None]
